FAERS Safety Report 5349775-8 (Version None)
Quarter: 2007Q2

REPORT INFORMATION
  Report Type: 
  Country: None (occurrence: None)
  Receive Date: 20070607
  Receipt Date: 20070529
  Transmission Date: 20071010
  Serious: Yes (Hospitalization)
  Sender: FDA-Public Use
  Company Number: FR-PFIZER INC-2007043825

PATIENT
  Age: 25 Year
  Sex: Female

DRUGS (1)
  1. SOLU-MEDROL [Suspect]
     Indication: HEMIANOPIA HOMONYMOUS
     Route: 042
     Dates: start: 20070418, end: 20070418

REACTIONS (1)
  - RASH [None]
